FAERS Safety Report 24684882 (Version 5)
Quarter: 2025Q1

REPORT INFORMATION
  Report Type: Report from Study
  Country: US (occurrence: US)
  Receive Date: 20241202
  Receipt Date: 20250203
  Transmission Date: 20250409
  Serious: Yes (Other)
  Sender: ABBVIE
  Company Number: US-ABBVIE-6025109

PATIENT
  Age: 54 Year
  Sex: Female
  Weight: 105 kg

DRUGS (2)
  1. RINVOQ [Suspect]
     Active Substance: UPADACITINIB
     Indication: Eczema
     Route: 048
     Dates: start: 202302
  2. RINVOQ [Suspect]
     Active Substance: UPADACITINIB
     Indication: Eczema
     Route: 048
     Dates: start: 2022

REACTIONS (7)
  - Toe amputation [Unknown]
  - Limb injury [Unknown]
  - Acne cystic [Unknown]
  - Product dispensing error [Unknown]
  - Acne [Unknown]
  - Foot deformity [Unknown]
  - Pruritus [Unknown]

NARRATIVE: CASE EVENT DATE: 20220101
